FAERS Safety Report 13425773 (Version 1)
Quarter: 2017Q2

REPORT INFORMATION
  Report Type: Spontaneous
  Country: US (occurrence: US)
  Receive Date: 20170411
  Receipt Date: 20170411
  Transmission Date: 20170830
  Serious: No
  Sender: FDA-Public Use
  Company Number: US-JNJFOC-20170215261

PATIENT
  Age: 70 Year
  Sex: Male
  Weight: 72.58 kg

DRUGS (18)
  1. CRESTOR [Concomitant]
     Active Substance: ROSUVASTATIN CALCIUM
     Route: 048
  2. METOLAZONE. [Concomitant]
     Active Substance: METOLAZONE
     Route: 065
  3. RANEXA [Concomitant]
     Active Substance: RANOLAZINE
     Route: 048
  4. LINZESS [Concomitant]
     Active Substance: LINACLOTIDE
     Route: 048
  5. TORSEMIDE. [Concomitant]
     Active Substance: TORSEMIDE
     Indication: DIURETIC THERAPY
     Route: 065
  6. ISOSORBIDE DINITRA [Concomitant]
     Route: 048
  7. PROBENECID. [Concomitant]
     Active Substance: PROBENECID
     Route: 048
  8. CALCITRIOL. [Concomitant]
     Active Substance: CALCITRIOL
     Route: 048
  9. PLAVIX [Concomitant]
     Active Substance: CLOPIDOGREL BISULFATE
     Route: 048
  10. AZELASTINE HYDROCHLORIDE. [Concomitant]
     Active Substance: AZELASTINE HYDROCHLORIDE
     Route: 045
  11. DURAGESIC [Suspect]
     Active Substance: FENTANYL
     Indication: PRODUCT USED FOR UNKNOWN INDICATION
     Route: 065
  12. PROBENECID. [Concomitant]
     Active Substance: PROBENECID
     Route: 048
  13. OMEPRAZOLE. [Concomitant]
     Active Substance: OMEPRAZOLE
     Route: 048
  14. DOXAZOSIN MESYLATE. [Concomitant]
     Active Substance: DOXAZOSIN MESYLATE
     Route: 048
  15. LANTUS [Concomitant]
     Active Substance: INSULIN GLARGINE
     Indication: TYPE 1 DIABETES MELLITUS
     Route: 058
  16. INSULIN ASPART [Concomitant]
     Active Substance: INSULIN ASPART
     Indication: TYPE 1 DIABETES MELLITUS
     Route: 058
  17. HYDRALAZINE HCL [Concomitant]
     Active Substance: HYDRALAZINE HYDROCHLORIDE
     Route: 048
  18. LABETALOL HCL [Concomitant]
     Active Substance: LABETALOL HYDROCHLORIDE
     Route: 048

REACTIONS (1)
  - Drug screen positive [Not Recovered/Not Resolved]

NARRATIVE: CASE EVENT DATE: 2017
